FAERS Safety Report 5992404-0 (Version None)
Quarter: 2008Q4

REPORT INFORMATION
  Report Type: 
  Country: None (occurrence: None)
  Receive Date: 20081202
  Receipt Date: 20080227
  Transmission Date: 20090506
  Serious: Yes (Disabling)
  Sender: FDA-Public Use
  Company Number: WAES 0705USA01543

PATIENT
  Age: 78 Year
  Sex: Female

DRUGS (3)
  1. FOSAMAX [Suspect]
     Indication: OSTEOPOROSIS
     Dosage: 70 MG/WKY/PO
     Route: 048
     Dates: start: 20050101, end: 20060601
  2. DONNATAL [Concomitant]
  3. ZANTAC [Concomitant]

REACTIONS (7)
  - ADVERSE EVENT [None]
  - DENTAL CARIES [None]
  - EXOSTOSIS [None]
  - RESORPTION BONE INCREASED [None]
  - TEMPOROMANDIBULAR JOINT SYNDROME [None]
  - TOOTH DISORDER [None]
  - TOOTH FRACTURE [None]
